FAERS Safety Report 15467594 (Version 1)
Quarter: 2018Q4

REPORT INFORMATION
  Report Type: Spontaneous
  Country: JP (occurrence: JP)
  Receive Date: 20181005
  Receipt Date: 20181005
  Transmission Date: 20190204
  Serious: Yes (Other)
  Sender: FDA-Public Use
  Company Number: JP-ACCORD-072942

PATIENT
  Age: 65 Year
  Sex: Female

DRUGS (4)
  1. ERIBULIN [Suspect]
     Active Substance: ERIBULIN
     Indication: INVASIVE DUCTAL BREAST CARCINOMA
  2. VINORELBINE/VINORELBINE DITARTRATE/VINORELBINE TARTRATE [Suspect]
     Active Substance: VINORELBINE TARTRATE
     Indication: INVASIVE DUCTAL BREAST CARCINOMA
  3. GEMCITABINE/GEMCITABINE HYDROCHLORIDE [Suspect]
     Active Substance: GEMCITABINE\GEMCITABINE HYDROCHLORIDE
     Indication: INVASIVE DUCTAL BREAST CARCINOMA
  4. PACLITAXEL/PACLITAXEL LIPOSOME [Suspect]
     Active Substance: PACLITAXEL
     Indication: INVASIVE DUCTAL BREAST CARCINOMA
     Dosage: WEEKLY

REACTIONS (1)
  - Pseudocirrhosis [Unknown]
